FAERS Safety Report 13255331 (Version 1)
Quarter: 2017Q1

REPORT INFORMATION
  Report Type: Spontaneous
  Country: US (occurrence: US)
  Receive Date: 20170219
  Receipt Date: 20170219
  Transmission Date: 20170428
  Serious: No
  Sender: FDA-Public Use
  Company Number: None

PATIENT
  Age: 74 Year
  Sex: Male
  Weight: 115 kg

DRUGS (1)
  1. LORAZEPAM. [Suspect]
     Active Substance: LORAZEPAM
     Indication: ANXIETY
     Route: 042
     Dates: start: 20161214, end: 20161214

REACTIONS (10)
  - Pulmonary oedema [None]
  - Unresponsive to stimuli [None]
  - Dyspnoea [None]
  - Hypercapnia [None]
  - Confusional state [None]
  - Respiratory depression [None]
  - Anxiety [None]
  - Delirium [None]
  - Agitation [None]
  - Respiratory failure [None]

NARRATIVE: CASE EVENT DATE: 20161214
